FAERS Safety Report 9645616 (Version 2)
Quarter: 2013Q4

REPORT INFORMATION
  Report Type: Spontaneous
  Country: US (occurrence: US)
  Receive Date: 20131025
  Receipt Date: 20131119
  Transmission Date: 20140711
  Serious: Yes (Death, Congenital Anomaly, Other)
  Sender: FDA-Public Use
  Company Number: US-PFIZER INC-2013304458

PATIENT
  Sex: Female

DRUGS (6)
  1. ZOLOFT [Suspect]
     Indication: ANXIETY
     Dosage: UNK
     Route: 064
     Dates: start: 200608, end: 200612
  2. ZOLOFT [Suspect]
     Indication: DEPRESSION
  3. ZOLOFT [Suspect]
     Indication: AFFECTIVE DISORDER
  4. PRENATAL VITAMINS [Concomitant]
     Dosage: UNK
     Route: 064
  5. TYLENOL [Concomitant]
     Dosage: UNK
     Route: 064
  6. HYDROCODONE [Concomitant]
     Dosage: UNK
     Route: 064

REACTIONS (6)
  - Maternal exposure during pregnancy [Fatal]
  - Heart disease congenital [Fatal]
  - Congenital anomaly [Fatal]
  - Deformity [Fatal]
  - Injury [Unknown]
  - Premature baby [Unknown]
